FAERS Safety Report 4502536-1 (Version None)
Quarter: 2005Q1

REPORT INFORMATION
  Report Type: 
  Country: None (occurrence: None)
  Receive Date: 20041112
  Receipt Date: 20041012
  Transmission Date: 20050727
  Serious: Yes (Death, Hospitalization)
  Sender: FDA-Public Use
  Company Number: D01200403208

PATIENT
  Age: 60 Year
  Sex: Male

DRUGS (4)
  1. (OXALIPLATIN) [Suspect]
     Dosage: 85 MG/M2 Q2WINTRAVENOUS NOS
     Route: 042
     Dates: start: 20040729, end: 20040729
  2. FLUOROURACIL [Suspect]
     Dosage: 400 MG/M2 AS IV BOLUS THEN 600MG/M2 AS 22 HOURS CONTINUOUS INFUSION D1-D2 Q2W INTRAVENOUS NOS
     Route: 042
     Dates: start: 20040729, end: 20040730
  3. SR57746 OR PLACEBO) [Suspect]
     Indication: COLORECTAL CANCER
     Dosage: 1 MG, QD, ORAL
     Route: 048
     Dates: start: 20040310, end: 20040812
  4. LEUCOVORIN CALCIUM [Suspect]
     Dosage: INTRAVENOUS NOS
     Route: 042
     Dates: start: 20040729, end: 20040730

REACTIONS (6)
  - BLOOD CREATININE INCREASED [None]
  - HAEMOPTYSIS [None]
  - NEUTROPENIA [None]
  - PLATELET COUNT DECREASED [None]
  - PROTHROMBIN TIME PROLONGED [None]
  - RESPIRATORY TRACT HAEMORRHAGE [None]
